FAERS Safety Report 12902210 (Version 3)
Quarter: 2017Q1

REPORT INFORMATION
  Report Type: Spontaneous
  Country: US (occurrence: US)
  Receive Date: 20161102
  Receipt Date: 20170103
  Transmission Date: 20170428
  Serious: No
  Sender: FDA-Public Use
  Company Number: US-PFIZER INC-2016508246

PATIENT
  Age: 68 Year
  Sex: Female
  Weight: 51 kg

DRUGS (4)
  1. ROBITUSSIN COUGH AND CHEST CONGESTION DM [Suspect]
     Active Substance: DEXTROMETHORPHAN HYDROBROMIDE\GUAIFENESIN
     Indication: PRODUCTIVE COUGH
     Dosage: 10 ML, UNK
     Route: 048
     Dates: start: 20161026
  2. ACETAMINOPHEN AND CODEINE [Suspect]
     Active Substance: ACETAMINOPHEN\CODEINE PHOSPHATE
     Indication: ANTITUSSIVE THERAPY
     Dosage: ONE TABLET EVERY 6 HOURS
     Route: 048
     Dates: start: 201610
  3. ROBITUSSIN 12 HOUR COUGH RELIEF [Suspect]
     Active Substance: DEXTROMETHORPHAN HYDROBROMIDE
     Indication: PRODUCTIVE COUGH
     Dosage: 10 ML, SINGLE
     Route: 048
     Dates: start: 20161030
  4. BENZONATATE. [Suspect]
     Active Substance: BENZONATATE
     Dosage: 100 MG, SINGLE
     Dates: start: 201610

REACTIONS (10)
  - Headache [Unknown]
  - Oropharyngeal discomfort [Unknown]
  - Drug effect incomplete [Unknown]
  - Viral infection [Unknown]
  - Dry throat [Unknown]
  - Oropharyngeal pain [Unknown]
  - Condition aggravated [Unknown]
  - Pharyngeal erythema [Unknown]
  - Fatigue [Unknown]
  - Somnolence [Unknown]

NARRATIVE: CASE EVENT DATE: 201610
